FAERS Safety Report 5751387-9 (Version None)
Quarter: 2008Q2

REPORT INFORMATION
  Report Type: 
  Country: None (occurrence: None)
  Receive Date: 20080528
  Receipt Date: 20080516
  Transmission Date: 20081010
  Serious: Yes (Other)
  Sender: FDA-Public Use
  Company Number: US-PFIZER INC-2008044174

PATIENT
  Sex: Male
  Weight: 84.1 kg

DRUGS (4)
  1. CHANTIX [Suspect]
     Indication: SMOKING CESSATION THERAPY
     Dates: start: 20080214, end: 20080515
  2. KLONOPIN [Concomitant]
  3. NAPROXEN [Concomitant]
  4. EFFEXOR [Concomitant]

REACTIONS (5)
  - ANXIETY [None]
  - BALANCE DISORDER [None]
  - DEPRESSION [None]
  - LIP SWELLING [None]
  - SWELLING FACE [None]
